FAERS Safety Report 11254183 (Version 1)
Quarter: 2015Q3

REPORT INFORMATION
  Report Type: Spontaneous
  Country: US (occurrence: None)
  Receive Date: 20150708
  Receipt Date: 20150708
  Transmission Date: 20151125
  Serious: Yes (Other)
  Sender: FDA-Public Use
  Company Number: None

PATIENT
  Age: 77 Year
  Sex: Female
  Weight: 91.17 kg

DRUGS (11)
  1. LEVOTHYROXINE. [Concomitant]
     Active Substance: LEVOTHYROXINE
  2. SOTALOL CALCITRIOL [Concomitant]
  3. JANUVIA [Suspect]
     Active Substance: SITAGLIPTIN PHOSPHATE
     Indication: DIABETES MELLITUS
     Dosage: BY MOUTH?30  1 TBLT
     Route: 048
     Dates: start: 20150318, end: 20150601
  4. OXYGEN CONCENTRATOR [Concomitant]
  5. NEBULIZER [Concomitant]
     Active Substance: DEVICE
  6. DOTRIMAZOLE [Concomitant]
  7. SIMVASTIN [Concomitant]
     Active Substance: SIMVASTATIN
  8. VITAMIN D [Concomitant]
     Active Substance: CHOLECALCIFEROL
  9. ALBUTEROL. [Concomitant]
     Active Substance: ALBUTEROL
  10. B6 [Concomitant]
     Active Substance: PYRIDOXINE HYDROCHLORIDE
  11. SPIRIVA [Concomitant]
     Active Substance: TIOTROPIUM BROMIDE MONOHYDRATE

REACTIONS (4)
  - Decreased appetite [None]
  - Weight decreased [None]
  - Diarrhoea [None]
  - Dizziness [None]
